FAERS Safety Report 5974822-X (Version None)
Quarter: 2008Q4

REPORT INFORMATION
  Report Type: 
  Country: None (occurrence: None)
  Receive Date: 20081201
  Receipt Date: 20081121
  Transmission Date: 20090506
  Serious: Yes (Other)
  Sender: FDA-Public Use
  Company Number: AU-PFIZER INC-2008100572

PATIENT
  Sex: Female

DRUGS (2)
  1. CHAMPIX [Suspect]
     Dates: start: 20080911
  2. IRBESARTAN [Concomitant]
     Indication: BLOOD PRESSURE

REACTIONS (3)
  - HYPOAESTHESIA [None]
  - MUSCULAR WEAKNESS [None]
  - PARAESTHESIA [None]
